FAERS Safety Report 25546101 (Version 1)
Quarter: 2025Q3

REPORT INFORMATION
  Report Type: Spontaneous
  Country: US (occurrence: US)
  Receive Date: 20250712
  Receipt Date: 20250712
  Transmission Date: 20251020
  Serious: No
  Sender: IPSEN BIOPHARMACEUTICALS, INC.
  Company Number: US-IPSEN Group, Research and Development-2025-15154

PATIENT
  Age: 59 Year
  Sex: Female
  Weight: 62 kg

DRUGS (32)
  1. TAZVERIK [Suspect]
     Active Substance: TAZEMETOSTAT HYDROBROMIDE
     Indication: Small cell carcinoma
     Dates: start: 20241126
  2. ACETAMINOPHEN [Concomitant]
     Active Substance: ACETAMINOPHEN
  3. Afrin No Drip Sinus Nasal Solution [Concomitant]
  4. Allegra allergy medicine [Concomitant]
  5. ALPHA LIPOIC ACID [Concomitant]
     Active Substance: .ALPHA.-LIPOIC ACID
  6. AMOXICILLIN [Concomitant]
     Active Substance: AMOXICILLIN
  7. ASPIRIN [Concomitant]
     Active Substance: ASPIRIN
  8. ATENOLOL [Concomitant]
     Active Substance: ATENOLOL
  9. ATENOLOL [Concomitant]
     Active Substance: ATENOLOL
  10. BACLOFEN [Concomitant]
     Active Substance: BACLOFEN
  11. BACLOFEN [Concomitant]
     Active Substance: BACLOFEN
  12. Biotin Super Potency [Concomitant]
  13. Biotin Super Potency [Concomitant]
  14. CALCIUM CARBONATE\VITAMIN D [Concomitant]
     Active Substance: CALCIUM CARBONATE\VITAMIN D
  15. CLARITIN [Concomitant]
     Active Substance: LORATADINE
  16. DOCUSATE SODIUM [Concomitant]
     Active Substance: DOCUSATE SODIUM
  17. ESTRADIOL [Concomitant]
     Active Substance: ESTRADIOL
  18. FAMOTIDINE [Concomitant]
     Active Substance: FAMOTIDINE
  19. FLONASE [Concomitant]
     Active Substance: FLUTICASONE PROPIONATE
  20. FOSFOMYCIN TROMETHAMINE [Concomitant]
     Active Substance: FOSFOMYCIN TROMETHAMINE
  21. GUANFACINE COUCH SYRUP [Concomitant]
  22. ARGININE [Concomitant]
     Active Substance: ARGININE
  23. LORAZEPAM [Concomitant]
     Active Substance: LORAZEPAM
  24. Multivitamin Women [Concomitant]
  25. NEURONTIN [Concomitant]
     Active Substance: GABAPENTIN
  26. ONDANSETRON HYDROCHLORIDE [Concomitant]
     Active Substance: ONDANSETRON HYDROCHLORIDE
  27. COENZYME Q10 [Concomitant]
     Active Substance: DIETARY SUPPLEMENT\UBIDECARENONE
  28. SIMETHICONE (DIMETHICONE) [Concomitant]
     Active Substance: DIMETHICONE
  29. TERBINAFINE HYDROCHLORIDE [Concomitant]
     Active Substance: TERBINAFINE HYDROCHLORIDE
  30. TRAMADOL HCL [Concomitant]
     Active Substance: TRAMADOL HYDROCHLORIDE
  31. TYLENOL [Concomitant]
     Active Substance: ACETAMINOPHEN
  32. Zepbound Subcutaneous Solution [Concomitant]

REACTIONS (3)
  - Hot flush [Not Recovered/Not Resolved]
  - Night sweats [Not Recovered/Not Resolved]
  - Headache [Not Recovered/Not Resolved]
